FAERS Safety Report 23686899 (Version 1)
Quarter: 2024Q1

REPORT INFORMATION
  Report Type: Spontaneous
  Country: US (occurrence: None)
  Receive Date: 20240328
  Receipt Date: 20240328
  Transmission Date: 20240410
  Serious: Yes (Other)
  Sender: FDA-Public Use
  Company Number: None

PATIENT
  Age: 66 Year
  Sex: Female
  Weight: 84.6 kg

DRUGS (17)
  1. OZEMPIC [Suspect]
     Active Substance: SEMAGLUTIDE
     Indication: Glycosylated haemoglobin increased
     Dosage: OTHER QUANTITY : 2 INJECTION(S);?OTHER FREQUENCY : WEEKLY;?
     Route: 058
     Dates: start: 20230824, end: 20231005
  2. Dexcom G6 [Concomitant]
  3. SUCRALFATE [Concomitant]
     Active Substance: SUCRALFATE
  4. PREGABALIN [Concomitant]
  5. TORSEMIDE [Concomitant]
     Active Substance: TORSEMIDE
  6. MAGNESIUM OXIDE [Concomitant]
     Active Substance: MAGNESIUM OXIDE
  7. potassium Ci CR WM [Concomitant]
  8. GLIPIZIDE XL [Concomitant]
     Active Substance: GLIPIZIDE
  9. LISINOPRIL [Concomitant]
  10. ATENOLOL [Concomitant]
     Active Substance: ATENOLOL
  11. ROSUVASTATIN [Concomitant]
     Active Substance: ROSUVASTATIN
  12. PANTOPRAZOLE [Concomitant]
  13. Humalin R U-500 [Concomitant]
  14. Acetaminophen ER [Concomitant]
  15. low dose aspirin [Concomitant]
  16. 1 day proactive 65+ vitamins [Concomitant]
  17. Cetirizine  HCI [Concomitant]

REACTIONS (2)
  - Diarrhoea [None]
  - Therapy cessation [None]

NARRATIVE: CASE EVENT DATE: 20230916
